FAERS Safety Report 6943293-9 (Version None)
Quarter: 2010Q3

REPORT INFORMATION
  Report Type: 
  Country: None (occurrence: None)
  Receive Date: 20100825
  Receipt Date: 20100825
  Transmission Date: 20110219
  Serious: Yes (Other)
  Sender: FDA-Public Use
  Company Number: None

PATIENT
  Age: 63 Year
  Sex: Female
  Weight: 69 kg

DRUGS (12)
  1. LAMICTAL [Suspect]
     Indication: CONVULSION
     Dosage: 400 MG DAILY ORALLY
     Route: 048
  2. PREDNISONE [Concomitant]
  3. AZATHIOPRINE [Concomitant]
  4. LIPITOR [Concomitant]
  5. COZAAR [Concomitant]
  6. PREMARIN [Concomitant]
  7. FOLATE [Concomitant]
  8. CYMBALTA [Concomitant]
  9. BONIVA [Concomitant]
  10. ASPIRIN [Concomitant]
  11. LEVOTHYROXINE [Concomitant]
  12. OXYCODONE [Concomitant]

REACTIONS (1)
  - OEDEMA [None]
